FAERS Safety Report 18975727 (Version 2)
Quarter: 2021Q1

REPORT INFORMATION
  Report Type: Spontaneous
  Country: RU (occurrence: RU)
  Receive Date: 20210305
  Receipt Date: 20210312
  Transmission Date: 20210420
  Serious: Yes (Hospitalization, Other)
  Sender: FDA-Public Use
  Company Number: RU-ALXN-A202102975

PATIENT
  Sex: Female

DRUGS (1)
  1. STRENSIQ [Suspect]
     Active Substance: ASFOTASE ALFA
     Indication: HYPOPHOSPHATASIA
     Dosage: 28 MG, TIW (28 MG IN 0.7 ML, DOSAGE REGIMEN 2 MG / KG BODY WEIGHT)
     Route: 065
     Dates: start: 20210201

REACTIONS (2)
  - Respiratory failure [Unknown]
  - Bronchitis [Unknown]

NARRATIVE: CASE EVENT DATE: 20210303
